FAERS Safety Report 7430609-2 (Version None)
Quarter: 2011Q2

REPORT INFORMATION
  Report Type: 
  Country: None (occurrence: None)
  Receive Date: 20110421
  Receipt Date: 20101122
  Transmission Date: 20111010
  Serious: No
  Sender: FDA-Public Use
  Company Number: US-ASTRAZENECA-2010SE55863

PATIENT
  Sex: Male

DRUGS (2)
  1. TOPROL-XL [Suspect]
     Dosage: ONE TABLET A DAY
     Route: 048
  2. TOPROL-XL [Suspect]
     Indication: CORONARY ARTERIAL STENT INSERTION
     Dosage: TWO TABLET A DAY
     Route: 048
     Dates: start: 20000101

REACTIONS (3)
  - HYPERTENSION [None]
  - HEART RATE INCREASED [None]
  - INCORRECT DOSE ADMINISTERED [None]
